FAERS Safety Report 11771540 (Version 2)
Quarter: 2016Q4

REPORT INFORMATION
  Report Type: Report from Study
  Country: NL (occurrence: NL)
  Receive Date: 20151124
  Receipt Date: 20161026
  Transmission Date: 20170206
  Serious: Yes (Hospitalization, Other)
  Sender: FDA-Public Use
  Company Number: NL-AMGEN-NLDSL2015122909

PATIENT
  Age: 94 Year
  Sex: Female

DRUGS (1)
  1. ARANESP [Suspect]
     Active Substance: DARBEPOETIN ALFA
     Indication: NEPHROGENIC ANAEMIA
     Dosage: 40 MCG (100 MCG/ML, 0.4ML), Q4WK
     Route: 058

REACTIONS (2)
  - Living in residential institution [Unknown]
  - Hospitalisation [Unknown]

NARRATIVE: CASE EVENT DATE: 20151117
